FAERS Safety Report 9704332 (Version 3)
Quarter: 2014Q1

REPORT INFORMATION
  Report Type: Spontaneous
  Country: US (occurrence: US)
  Receive Date: 20131122
  Receipt Date: 20140317
  Transmission Date: 20141002
  Serious: No
  Sender: FDA-Public Use
  Company Number: US-009507513-1311USA007999

PATIENT
  Age: 22 Year
  Sex: Female
  Weight: 81.63 kg

DRUGS (1)
  1. IMPLANON [Suspect]
     Indication: CONTRACEPTION
     Dosage: UNK, LEFT ARM
     Route: 059
     Dates: start: 20110208, end: 20140106

REACTIONS (7)
  - Device difficult to use [Unknown]
  - Weight increased [Unknown]
  - Medical device complication [Unknown]
  - Tension headache [Unknown]
  - Postpartum depression [Unknown]
  - Sinusitis [Unknown]
  - Device dislocation [Recovered/Resolved]
